FAERS Safety Report 24200614 (Version 1)
Quarter: 2024Q3

REPORT INFORMATION
  Report Type: Spontaneous
  Country: US (occurrence: US)
  Receive Date: 20240812
  Receipt Date: 20240812
  Transmission Date: 20241017
  Serious: No
  Sender: ANI
  Company Number: US-ANIPHARMA-2024-US-034753

PATIENT
  Sex: Female

DRUGS (2)
  1. CORTICOTROPIN [Suspect]
     Active Substance: CORTICOTROPIN
     Indication: Multiple sclerosis
     Dosage: 80 UNITS SUBCUTANEOUS INJECTION DAILY FOR SEVEN DAYS
     Route: 058
  2. VUMERITY [Concomitant]
     Active Substance: DIROXIMEL FUMARATE

REACTIONS (2)
  - COVID-19 [Unknown]
  - Bronchitis [Unknown]
